FAERS Safety Report 9567256 (Version 1)
Quarter: 2013Q3

REPORT INFORMATION
  Report Type: Spontaneous
  Country: US (occurrence: US)
  Receive Date: 20130930
  Receipt Date: 20130930
  Transmission Date: 20140515
  Serious: No
  Sender: FDA-Public Use
  Company Number: US-AMGEN-USASP2012061859

PATIENT
  Sex: Female
  Weight: 30.91 kg

DRUGS (7)
  1. ENBREL [Suspect]
     Indication: PRODUCT USED FOR UNKNOWN INDICATION
     Dosage: 50 MG, QWK
  2. FOLIC ACID [Concomitant]
     Dosage: 1 MG, UNK
  3. METHOTREXATE [Concomitant]
     Dosage: 2.5 MG, UNK
  4. TRAMADOL HCL [Concomitant]
     Dosage: 50 MG, UNK
  5. FLONASE [Concomitant]
     Dosage: 0.05%
  6. ZYFLO [Concomitant]
     Dosage: UNK
  7. ANTIHISTAMIN [Concomitant]
     Dosage: 2.5-30MG

REACTIONS (2)
  - Injection site urticaria [Unknown]
  - Hypersensitivity [Unknown]
